FAERS Safety Report 6358790-7 (Version None)
Quarter: 2009Q3

REPORT INFORMATION
  Report Type: 
  Country: None (occurrence: None)
  Receive Date: 20090916
  Receipt Date: 20090804
  Transmission Date: 20100115
  Serious: No
  Sender: FDA-Public Use
  Company Number: US-ABBOTT-09P-163-0589305-00

PATIENT
  Sex: Male
  Weight: 127.12 kg

DRUGS (1)
  1. TRILIPIX [Suspect]
     Indication: BLOOD CHOLESTEROL INCREASED
     Route: 048
     Dates: start: 20090601

REACTIONS (1)
  - HEPATIC ENZYME INCREASED [None]
